FAERS Safety Report 9282930 (Version 1)
Quarter: 2013Q2

REPORT INFORMATION
  Report Type: Spontaneous
  Country: US (occurrence: US)
  Receive Date: 20130510
  Receipt Date: 20130510
  Transmission Date: 20140414
  Serious: Yes (Hospitalization)
  Sender: FDA-Public Use
  Company Number: US-NAPPMUNDI-USA-2013-0100401

PATIENT
  Age: 43 Year
  Sex: Female

DRUGS (5)
  1. BUTRANS [Suspect]
     Indication: NECK PAIN
     Dosage: 5 MCG/HR, WEEKLY
     Route: 062
     Dates: start: 20130319, end: 20130331
  2. BUTRANS [Suspect]
     Indication: MUSCULOSKELETAL PAIN
  3. BUSPAR [Concomitant]
     Indication: PRODUCT USED FOR UNKNOWN INDICATION
  4. CELEXA                             /00582602/ [Concomitant]
     Indication: PRODUCT USED FOR UNKNOWN INDICATION
  5. ATIVAN [Concomitant]
     Indication: ANXIETY
     Dosage: UNK
     Dates: start: 20130319

REACTIONS (5)
  - Dysarthria [Recovered/Resolved]
  - Swollen tongue [Recovered/Resolved]
  - Impaired gastric emptying [Unknown]
  - Upper gastrointestinal haemorrhage [Recovered/Resolved]
  - Gastritis [Recovered/Resolved]
